FAERS Safety Report 9461728 (Version 1)
Quarter: 2013Q3

REPORT INFORMATION
  Report Type: Report from Study
  Country: DE (occurrence: DE)
  Receive Date: 20130816
  Receipt Date: 20130816
  Transmission Date: 20140515
  Serious: Yes (Death)
  Sender: FDA-Public Use
  Company Number: DE-ASTELLAS-2013EU006937

PATIENT
  Age: 70 Year
  Sex: 0

DRUGS (1)
  1. ENZALUTAMIDE [Suspect]
     Dosage: UNK
     Route: 065

REACTIONS (1)
  - Death [Fatal]
